FAERS Safety Report 4933764-9 (Version None)
Quarter: 2006Q1

REPORT INFORMATION
  Report Type: 
  Country: None (occurrence: None)
  Receive Date: 20060306
  Receipt Date: 20050929
  Transmission Date: 20060701
  Serious: Yes (Hospitalization, Other)
  Sender: FDA-Public Use
  Company Number: US-MERCK-0510USA00185

PATIENT
  Age: 64 Year
  Sex: Female
  Weight: 65 kg

DRUGS (1)
  1. VIOXX [Suspect]
     Indication: ARTHRITIS
     Route: 048
     Dates: start: 20011212, end: 20040930

REACTIONS (17)
  - ARTHRALGIA [None]
  - ASTHMA [None]
  - BACK PAIN [None]
  - BRONCHIAL HYPERACTIVITY [None]
  - CORONARY ARTERY DISEASE [None]
  - DIZZINESS [None]
  - HEADACHE [None]
  - HYPERLIPIDAEMIA [None]
  - HYPERTENSION [None]
  - INTERVERTEBRAL DISC OPERATION [None]
  - LUNG DISORDER [None]
  - MYOCARDIAL INFARCTION [None]
  - MYOCARDIAL ISCHAEMIA [None]
  - NON-CARDIAC CHEST PAIN [None]
  - PAIN IN EXTREMITY [None]
  - SCOLIOSIS [None]
  - STOMACH DISCOMFORT [None]
